FAERS Safety Report 11294080 (Version 1)
Quarter: 2015Q3

REPORT INFORMATION
  Report Type: Spontaneous
  Country: US (occurrence: US)
  Receive Date: 20150722
  Receipt Date: 20150722
  Transmission Date: 20151125
  Serious: No
  Sender: FDA-Public Use
  Company Number: US-AMGEN-USASP2015067299

PATIENT
  Age: 85 Year
  Sex: Female
  Weight: 73.8 kg

DRUGS (1)
  1. KYPROLIS [Suspect]
     Active Substance: CARFILZOMIB
     Indication: PLASMA CELL MYELOMA
     Dosage: 35 MG, CD 1,2,8,9,15,16
     Route: 042
     Dates: start: 20150630

REACTIONS (3)
  - Injection site erythema [Recovering/Resolving]
  - Injection site extravasation [Recovering/Resolving]
  - Injection site irritation [Recovering/Resolving]

NARRATIVE: CASE EVENT DATE: 20150630
